FAERS Safety Report 7011329-5 (Version None)
Quarter: 2010Q3

REPORT INFORMATION
  Report Type: 
  Country: None (occurrence: None)
  Receive Date: 20100922
  Receipt Date: 20100922
  Transmission Date: 20110219
  Serious: Yes (Other)
  Sender: FDA-Public Use
  Company Number: None

PATIENT
  Sex: Male
  Weight: 90.7194 kg

DRUGS (1)
  1. OXYCONTIN [Suspect]
     Indication: PAIN
     Dosage: 40MG 2 PO
     Route: 048
     Dates: start: 20100727, end: 20100821

REACTIONS (4)
  - ECONOMIC PROBLEM [None]
  - GASTRIC DISORDER [None]
  - PAIN [None]
  - UNEMPLOYMENT [None]
